FAERS Safety Report 16029670 (Version 1)
Quarter: 2019Q1

REPORT INFORMATION
  Report Type: Spontaneous
  Country: US (occurrence: US)
  Receive Date: 20190304
  Receipt Date: 20190304
  Transmission Date: 20190418
  Serious: Yes (Hospitalization)
  Sender: FDA-Public Use
  Company Number: US-PFIZER INC-2019089131

PATIENT
  Age: 49 Year

DRUGS (1)
  1. GABAPENTIN. [Suspect]
     Active Substance: GABAPENTIN
     Dosage: UNK

REACTIONS (5)
  - Blood count abnormal [Unknown]
  - Tumour haemorrhage [Unknown]
  - Ovarian mass [Unknown]
  - Uterine leiomyoma [Unknown]
  - Drug ineffective [Unknown]
